FAERS Safety Report 9061663 (Version 1)
Quarter: 2013Q1

REPORT INFORMATION
  Report Type: Spontaneous
  Country: US (occurrence: None)
  Receive Date: 20130118
  Receipt Date: 20130118
  Transmission Date: 20140127
  Serious: Yes (Life-Threatening, Hospitalization)
  Sender: FDA-Public Use
  Company Number: DAV-AE-ALF-13-04

PATIENT
  Age: 22 Year
  Sex: Male

DRUGS (3)
  1. ALPRAZOLAM [Suspect]
     Dosage: (54 TABS)
  2. METHADONE [Concomitant]
  3. SERTRALINE [Concomitant]

REACTIONS (11)
  - Overdose [None]
  - Drug abuse [None]
  - Stupor [None]
  - Blood pressure decreased [None]
  - Heart rate decreased [None]
  - Respiratory rate decreased [None]
  - Miosis [None]
  - Mucosal dryness [None]
  - Drug screen positive [None]
  - Hypopnoea [None]
  - Encephalopathy [None]
